FAERS Safety Report 14852969 (Version 2)
Quarter: 2018Q2

REPORT INFORMATION
  Report Type: Report from Study
  Country: US (occurrence: US)
  Receive Date: 20180507
  Receipt Date: 20180627
  Transmission Date: 20180711
  Serious: Yes (Hospitalization)
  Sender: FDA-Public Use
  Company Number: US-GILEAD-2018-0336848

PATIENT
  Age: 52 Year
  Sex: Female

DRUGS (7)
  1. WARFARIN SODIUM. [Concomitant]
     Active Substance: WARFARIN SODIUM
  2. SODIUM BICARBONATE. [Concomitant]
     Active Substance: SODIUM BICARBONATE
  3. ADEMPAS [Concomitant]
     Active Substance: RIOCIGUAT
  4. AMBRISENTAN [Suspect]
     Active Substance: AMBRISENTAN
     Indication: PULMONARY ARTERY ANEURYSM
     Dosage: 10 MG, QD
     Route: 065
     Dates: start: 20171122
  5. ENALAPRIL [Concomitant]
     Active Substance: ENALAPRIL
  6. KLOR-CON [Concomitant]
     Active Substance: POTASSIUM CHLORIDE
  7. FUROSEMIDE. [Concomitant]
     Active Substance: FUROSEMIDE

REACTIONS (4)
  - Off label use [Not Recovered/Not Resolved]
  - Cardiac valve disease [Unknown]
  - Renal disorder [Unknown]
  - Fluid retention [Recovered/Resolved]

NARRATIVE: CASE EVENT DATE: 20171122
